FAERS Safety Report 10364140 (Version 3)
Quarter: 2014Q3

REPORT INFORMATION
  Report Type: Spontaneous
  Country: DE (occurrence: DE)
  Receive Date: 20140806
  Receipt Date: 20140820
  Transmission Date: 20150326
  Serious: Yes (Hospitalization)
  Sender: FDA-Public Use
  Company Number: DE-BEH-2014043086

PATIENT
  Age: 57 Year
  Sex: Female

DRUGS (9)
  1. HIZENTRA [Suspect]
     Active Substance: HUMAN IMMUNOGLOBULIN G
  2. CITALOPRAM [Concomitant]
     Active Substance: CITALOPRAM HYDROBROMIDE
  3. HIZENTRA [Suspect]
     Active Substance: HUMAN IMMUNOGLOBULIN G
     Indication: HUMORAL IMMUNE DEFECT
     Dosage: START DATE: ??-APR-2011; ADMINISTERED REGULARLY
     Route: 058
  4. REMERGIL 45 MG [Concomitant]
  5. SPIRIVA 18 ?G [Concomitant]
  6. THEOPHYLLINE [Concomitant]
     Active Substance: THEOPHYLLINE
  7. HIZENTRA [Suspect]
     Active Substance: HUMAN IMMUNOGLOBULIN G
     Dosage: 4 G/20 ML; DURATION OF APPLICATION: 2H
     Route: 058
  8. AMLODIPINE 5 MG [Concomitant]
  9. FORADIL P 12 ?G [Concomitant]

REACTIONS (5)
  - Feeling hot [Not Recovered/Not Resolved]
  - Nausea [Not Recovered/Not Resolved]
  - Blood pressure increased [Not Recovered/Not Resolved]
  - Asthenia [Not Recovered/Not Resolved]
  - Fear [Not Recovered/Not Resolved]

NARRATIVE: CASE EVENT DATE: 201404
